FAERS Safety Report 18805285 (Version 2)
Quarter: 2021Q1

REPORT INFORMATION
  Report Type: Report from Study
  Country: NL (occurrence: NL)
  Receive Date: 20210128
  Receipt Date: 20210310
  Transmission Date: 20210419
  Serious: Yes (Other)
  Sender: FDA-Public Use
  Company Number: NL-INCYTE CORPORATION-2018IN013453

PATIENT

DRUGS (15)
  1. FUROSEMIDE. [Concomitant]
     Active Substance: FUROSEMIDE
     Indication: PRODUCT USED FOR UNKNOWN INDICATION
     Dosage: 40 MG, QD
     Route: 065
     Dates: start: 20171227, end: 20201126
  2. METOPROLOL TEVA [Concomitant]
     Active Substance: METOPROLOL
     Indication: PRODUCT USED FOR UNKNOWN INDICATION
     Dosage: 50 MG, QD
     Route: 065
     Dates: start: 20181115
  3. OMEPRAZOLE. [Concomitant]
     Active Substance: OMEPRAZOLE
     Indication: PRODUCT USED FOR UNKNOWN INDICATION
     Dosage: 40 MG, QD
     Route: 065
     Dates: start: 2010
  4. JAKAVI [Suspect]
     Active Substance: RUXOLITINIB
     Indication: POLYCYTHAEMIA VERA
     Dosage: 10 MG, BID
     Route: 048
     Dates: start: 20181029
  5. JAKAVI [Suspect]
     Active Substance: RUXOLITINIB
     Dosage: 15?10 MG BID
     Route: 048
     Dates: start: 20181206, end: 20181227
  6. FENTANYL. [Concomitant]
     Active Substance: FENTANYL
     Indication: PRODUCT USED FOR UNKNOWN INDICATION
     Dosage: 25 UG/HOUR, 1XPER 3 DAYS 1 PIECE, PATCH
     Route: 065
     Dates: start: 20171101
  7. ENALAPRIL [Concomitant]
     Active Substance: ENALAPRIL
     Indication: PRODUCT USED FOR UNKNOWN INDICATION
     Dosage: 20 MG, QD
     Route: 065
     Dates: start: 2010, end: 20200611
  8. CLOPIDOGREL AUROBINDO [Concomitant]
     Active Substance: CLOPIDOGREL BISULFATE
     Indication: PRODUCT USED FOR UNKNOWN INDICATION
     Dosage: 75 MG, QD
     Route: 065
     Dates: start: 20181003, end: 20200625
  9. JAKAVI [Suspect]
     Active Substance: RUXOLITINIB
     Dosage: 10 MG, BID
     Route: 048
     Dates: start: 20181227, end: 20190118
  10. JAKAVI [Suspect]
     Active Substance: RUXOLITINIB
     Dosage: 5 MILLIGRAM, BID
     Route: 048
     Dates: start: 20190118, end: 20190201
  11. OXYCODON [Concomitant]
     Active Substance: OXYCODONE
     Indication: PRODUCT USED FOR UNKNOWN INDICATION
     Dosage: 5 MG, QID (IF NECESSARY)
     Route: 065
     Dates: start: 20180419
  12. JAKAVI [Suspect]
     Active Substance: RUXOLITINIB
     Dosage: 5 MG, PER DAY
     Route: 048
     Dates: start: 20190201, end: 20190208
  13. MOVICOLON [Concomitant]
     Active Substance: POLYETHYLENE GLYCOL 3350\POTASSIUM CHLORIDE\SODIUM BICARBONATE\SODIUM CHLORIDE
     Indication: PRODUCT USED FOR UNKNOWN INDICATION
     Dosage: UNK, QD (1 SACHET)
     Route: 065
     Dates: start: 20171222
  14. CALCI CHEW D3 [Concomitant]
     Active Substance: CALCIUM CARBONATE\CHOLECALCIFEROL
     Indication: PRODUCT USED FOR UNKNOWN INDICATION
     Dosage: 500800 UNK, QD (MG/IE)
     Route: 065
     Dates: start: 20160118, end: 20200625
  15. JAKAVI [Suspect]
     Active Substance: RUXOLITINIB
     Dosage: 15 MG, BID
     Route: 048
     Dates: start: 20181115, end: 20181206

REACTIONS (4)
  - Deep vein thrombosis [Recovered/Resolved]
  - Swelling [Recovered/Resolved]
  - Anaemia [Not Recovered/Not Resolved]
  - Pain [Recovered/Resolved]

NARRATIVE: CASE EVENT DATE: 20181206
